FAERS Safety Report 4712852-6 (Version None)
Quarter: 2005Q3

REPORT INFORMATION
  Report Type: 
  Country: None (occurrence: None)
  Receive Date: 20050711
  Receipt Date: 20050624
  Transmission Date: 20060218
  Serious: Yes (Other)
  Sender: FDA-Public Use
  Company Number: 2005BL004071

PATIENT
  Sex: Male

DRUGS (1)
  1. PILOCARPINE NITRATE 2% (PILOCARPINE NITRATE) [Suspect]
     Indication: MIOSIS
     Dosage: LEFT EYE

REACTIONS (3)
  - INTRAOCULAR PRESSURE INCREASED [None]
  - LENS DISORDER [None]
  - PAIN [None]
